FAERS Safety Report 24436857 (Version 1)
Quarter: 2024Q4

REPORT INFORMATION
  Report Type: Spontaneous
  Country: US (occurrence: US)
  Receive Date: 20241015
  Receipt Date: 20241015
  Transmission Date: 20250115
  Serious: No
  Sender: ABBVIE
  Company Number: US-ABBVIE-5958413

PATIENT
  Sex: Female

DRUGS (1)
  1. BOTOX [Suspect]
     Active Substance: ONABOTULINUMTOXINA
     Indication: Hypertonic bladder
     Dosage: TIME INTERVAL: AS NECESSARY: FORM STRENGTH: 100UNIT
     Route: 030

REACTIONS (2)
  - Dizziness [Unknown]
  - Fall [Unknown]
